FAERS Safety Report 26169464 (Version 1)
Quarter: 2025Q4

REPORT INFORMATION
  Report Type: Spontaneous
  Country: US (occurrence: US)
  Receive Date: 20251217
  Receipt Date: 20251217
  Transmission Date: 20260118
  Serious: No
  Sender: LANNETT
  Company Number: US-LANNETT COMPANY, INC.-US-2025LAN000247

PATIENT

DRUGS (1)
  1. LISDEXAMFETAMINE DIMESYLATE [Suspect]
     Active Substance: LISDEXAMFETAMINE DIMESYLATE
     Indication: Attention deficit hyperactivity disorder
     Dosage: UNK, UNK
     Route: 065

REACTIONS (4)
  - Attention deficit hyperactivity disorder [Unknown]
  - Binge eating [Unknown]
  - Condition aggravated [Unknown]
  - Drug ineffective [Unknown]
